FAERS Safety Report 21120097 (Version 1)
Quarter: 2022Q3

REPORT INFORMATION
  Report Type: Report from Study
  Country: BR (occurrence: BR)
  Receive Date: 20220722
  Receipt Date: 20220722
  Transmission Date: 20221027
  Serious: Yes (Hospitalization)
  Sender: FDA-Public Use
  Company Number: BR-BIOGEN-2022BI01140658

PATIENT
  Age: 39 Year
  Sex: Female
  Weight: 87 kg

DRUGS (7)
  1. TECFIDERA [Suspect]
     Active Substance: DIMETHYL FUMARATE
     Indication: Multiple sclerosis
     Route: 050
     Dates: start: 202006, end: 20220707
  2. LEVOTHYROXINE [Concomitant]
     Active Substance: LEVOTHYROXINE
     Indication: Hypothyroidism
     Route: 050
     Dates: start: 2011
  3. VITAMIN D NOS [Concomitant]
     Active Substance: VITAMIN D NOS
     Indication: Multiple sclerosis
     Route: 050
     Dates: start: 202006
  4. VITAMIN B12 [Concomitant]
     Active Substance: CYANOCOBALAMIN
     Indication: Protein deficiency
     Route: 050
     Dates: start: 202205
  5. OMEGA 3 [Concomitant]
     Active Substance: CAPSAICIN
     Indication: Product used for unknown indication
     Route: 050
     Dates: start: 202205
  6. MIRENA [Concomitant]
     Active Substance: LEVONORGESTREL
     Indication: Contraception
     Route: 050
     Dates: start: 2017
  7. MANIPULATED VITAMIN SUPPLEMENT [Concomitant]
     Indication: Constipation
     Route: 050
     Dates: start: 202205

REACTIONS (1)
  - Multiple sclerosis relapse [Recovered/Resolved with Sequelae]

NARRATIVE: CASE EVENT DATE: 20220601
